FAERS Safety Report 12233875 (Version 1)
Quarter: 2016Q2

REPORT INFORMATION
  Report Type: Spontaneous
  Country: US (occurrence: US)
  Receive Date: 20160404
  Receipt Date: 20160404
  Transmission Date: 20160815
  Serious: Yes (Hospitalization)
  Sender: FDA-Public Use
  Company Number: US-UNITED THERAPEUTICS-UNT-2016-005007

PATIENT
  Sex: Female

DRUGS (1)
  1. REMODULIN [Suspect]
     Active Substance: TREPROSTINIL
     Indication: PULMONARY ARTERIAL HYPERTENSION
     Dosage: 0.0825 ?G/KG, Q72H
     Route: 058
     Dates: start: 201407

REACTIONS (3)
  - Hypersensitivity [Unknown]
  - Seasonal allergy [Unknown]
  - Device issue [Unknown]

NARRATIVE: CASE EVENT DATE: 201603
